FAERS Safety Report 7235766-9 (Version None)
Quarter: 2011Q1

REPORT INFORMATION
  Report Type: 
  Country: None (occurrence: None)
  Receive Date: 20110120
  Receipt Date: 20110118
  Transmission Date: 20110831
  Serious: Yes (Hospitalization)
  Sender: FDA-Public Use
  Company Number: US-ELI_LILLY_AND_COMPANY-US201101004505

PATIENT
  Sex: Female
  Weight: 63.492 kg

DRUGS (1)
  1. PRASUGREL HYDROCHLORIDE [Suspect]
     Dates: start: 20100708

REACTIONS (1)
  - HOSPITALISATION [None]
